FAERS Safety Report 7610400-4 (Version None)
Quarter: 2011Q3

REPORT INFORMATION
  Report Type: 
  Country: None (occurrence: None)
  Receive Date: 20110715
  Receipt Date: 20110712
  Transmission Date: 20111222
  Serious: No
  Sender: FDA-Public Use
  Company Number: US-PFIZER INC-2011139458

PATIENT
  Sex: Female
  Weight: 58.957 kg

DRUGS (5)
  1. VENLAFAXINE HCL [Suspect]
     Indication: ANXIETY
  2. VENLAFAXINE HCL [Suspect]
     Indication: DEPRESSION
  3. VENLAFAXINE HCL [Suspect]
     Indication: OBSESSIVE-COMPULSIVE DISORDER
     Dosage: 150 MG, UNK
     Route: 048
     Dates: start: 20110506, end: 20110620
  4. ATIVAN [Concomitant]
     Indication: ANXIETY
     Dosage: 1 MG UP TO 3 TABLETS
  5. SYNTHROID [Concomitant]
     Indication: THYROID CANCER
     Dosage: 0.50 MG DAILY

REACTIONS (6)
  - MALAISE [None]
  - NAUSEA [None]
  - DIZZINESS [None]
  - HEADACHE [None]
  - TINNITUS [None]
  - DRUG INEFFECTIVE [None]
